FAERS Safety Report 11419023 (Version 1)
Quarter: 2015Q3

REPORT INFORMATION
  Report Type: Spontaneous
  Country: US (occurrence: US)
  Receive Date: 20150826
  Receipt Date: 20150826
  Transmission Date: 20151125
  Serious: No
  Sender: FDA-Public Use
  Company Number: US-TEVA-543105USA

PATIENT
  Age: 86 Year
  Sex: Male
  Weight: 93 kg

DRUGS (12)
  1. GALANTAMINE. [Suspect]
     Active Substance: GALANTAMINE
     Indication: DEMENTIA ALZHEIMER^S TYPE
     Dosage: 8 MILLIGRAM DAILY;
     Route: 048
     Dates: start: 20141022
  2. DETROL [Concomitant]
     Active Substance: TOLTERODINE TARTRATE
     Dosage: 4 MILLIGRAM DAILY;
  3. IPRATROPIUM [Concomitant]
     Active Substance: IPRATROPIUM
     Route: 045
  4. ALPRAZOLAM. [Concomitant]
     Active Substance: ALPRAZOLAM
     Dosage: 1 MILLIGRAM DAILY; PRN
  5. KETOCONAZOLE. [Concomitant]
     Active Substance: KETOCONAZOLE
  6. SUCRALFATE. [Concomitant]
     Active Substance: SUCRALFATE
     Dosage: 4 GRAM DAILY;
  7. VENLAFAXINE [Concomitant]
     Active Substance: VENLAFAXINE HYDROCHLORIDE
     Dosage: 300 MILLIGRAM DAILY;
  8. TIMOLOL MALEATE. [Concomitant]
     Active Substance: TIMOLOL MALEATE
  9. RANITIDINE [Concomitant]
     Active Substance: RANITIDINE\RANITIDINE HYDROCHLORIDE
     Dosage: 300 MILLIGRAM DAILY;
  10. LATANOPROST. [Concomitant]
     Active Substance: LATANOPROST
  11. CITALOPRAM [Concomitant]
     Active Substance: CITALOPRAM HYDROBROMIDE
  12. ATORVASTATIN [Concomitant]
     Active Substance: ATORVASTATIN
     Dosage: 40 MILLIGRAM DAILY;

REACTIONS (3)
  - Rash [Recovered/Resolved]
  - Erythema [Recovered/Resolved]
  - Pruritus [Recovered/Resolved]

NARRATIVE: CASE EVENT DATE: 20141024
